FAERS Safety Report 6921560-2 (Version None)
Quarter: 2010Q3

REPORT INFORMATION
  Report Type: 
  Country: None (occurrence: None)
  Receive Date: 20100805
  Receipt Date: 20100507
  Transmission Date: 20110219
  Serious: No
  Sender: FDA-Public Use
  Company Number: US-002038

PATIENT
  Sex: Male

DRUGS (13)
  1. DEGARELIX 80 MG [Suspect]
     Dosage: (SUBCUTANEOUS)
     Route: 058
     Dates: start: 20100223
  2. AMITRIPTYLINE HYDROCHLORIDE [Concomitant]
  3. ATIVAN [Concomitant]
  4. CYMBALTA [Concomitant]
  5. DITROPAN XL [Concomitant]
  6. INDERAL [Concomitant]
  7. LISINOPRIL [Concomitant]
  8. LYRICA [Concomitant]
  9. MEGACE [Concomitant]
  10. PERCOCET [Concomitant]
  11. PREDNISONE [Concomitant]
  12. PHENOBARBITAL [Concomitant]
  13. TRENTAL [Concomitant]

REACTIONS (1)
  - INJECTION SITE DISCOMFORT [None]
